FAERS Safety Report 11596455 (Version 2)
Quarter: 2016Q1

REPORT INFORMATION
  Report Type: Report from Study
  Country: JP (occurrence: JP)
  Receive Date: 20151006
  Receipt Date: 20160115
  Transmission Date: 20160525
  Serious: Yes (Hospitalization, Other)
  Sender: FDA-Public Use
  Company Number: JP-009507513-1510JPN001795

PATIENT
  Age: 1 Month
  Sex: Male

DRUGS (14)
  1. DIAZOXIDE CAPSULES 25 MG ^MSD^ [Suspect]
     Active Substance: DIAZOXIDE
     Dosage: 20 MG, BID AT 09:00 AND AT 21:00
     Route: 048
     Dates: start: 20150219
  2. DEXTROSE. [Concomitant]
     Active Substance: DEXTROSE
     Indication: HYPOGLYCAEMIA
     Dosage: UNK, QD (DAILY DOSE UNKNOWN)
     Route: 042
     Dates: start: 20130315, end: 20130331
  3. DIAZOXIDE CAPSULES 25 MG ^MSD^ [Suspect]
     Active Substance: DIAZOXIDE
     Indication: HYPERINSULINAEMIC HYPOGLYCAEMIA
     Dosage: 7 MG, BID AT 09:00 AND AT 21:00
     Route: 048
     Dates: start: 20130401, end: 20130404
  4. DIAZOXIDE CAPSULES 25 MG ^MSD^ [Suspect]
     Active Substance: DIAZOXIDE
     Dosage: 2.5 MG, BID AT 09:00 AND AT 21:00
     Route: 048
     Dates: start: 20130909, end: 20130926
  5. DIAZOXIDE CAPSULES 25 MG ^MSD^ [Suspect]
     Active Substance: DIAZOXIDE
     Dosage: 10 MG, BID AT 09:00 AND AT 21:0010 MG, BID
     Route: 048
     Dates: start: 20130405, end: 20130406
  6. DEXTROSE. [Concomitant]
     Active Substance: DEXTROSE
     Dosage: UNK, QD (DAILY DOSE UNKNOWN)
     Route: 042
     Dates: start: 20130401, end: 20130410
  7. MUCODYNE [Concomitant]
     Active Substance: CARBOCYSTEINE
     Indication: UPPER RESPIRATORY TRACT INFLAMMATION
     Dosage: 100 MG, QD (DIVIDED DOSE FREQUENCY UNKNOWN)
     Route: 048
     Dates: start: 20130323, end: 20130405
  8. DIAZOXIDE CAPSULES 25 MG ^MSD^ [Suspect]
     Active Substance: DIAZOXIDE
     Dosage: 7.5 MG, BID AT 09:00 AND AT 21:00
     Route: 048
     Dates: start: 20130705, end: 20130730
  9. DIAZOXIDE CAPSULES 25 MG ^MSD^ [Suspect]
     Active Substance: DIAZOXIDE
     Dosage: 5 MG, BID AT 09:00 AND AT 21:00
     Route: 048
     Dates: start: 20130731, end: 20130908
  10. DIAZOXIDE CAPSULES 25 MG ^MSD^ [Suspect]
     Active Substance: DIAZOXIDE
     Dosage: 7.5 MG, BID AT 09:00 AND AT 21:00
     Route: 048
     Dates: start: 20150106, end: 20150218
  11. DIAZOXIDE CAPSULES 25 MG ^MSD^ [Suspect]
     Active Substance: DIAZOXIDE
     Dosage: 10 MG, BID AT 09:00 AND AT 21:00
     Route: 048
     Dates: start: 20130618, end: 20130704
  12. DIAZOXIDE CAPSULES 25 MG ^MSD^ [Suspect]
     Active Substance: DIAZOXIDE
     Dosage: 12.5 MG, BID AT 09:00 AND AT 21:00
     Route: 048
     Dates: start: 20130407, end: 20130617
  13. DIAZOXIDE CAPSULES 25 MG ^MSD^ [Suspect]
     Active Substance: DIAZOXIDE
     Dosage: 2.5 MG, BID AT 09:00 AND AT 21:00
     Route: 048
     Dates: start: 20131220, end: 20140122
  14. DIAZOXIDE CAPSULES 25 MG ^MSD^ [Suspect]
     Active Substance: DIAZOXIDE
     Dosage: 7.5 MG, BID AT 09:00 AND AT 21:00
     Route: 048
     Dates: start: 20140123, end: 20141017

REACTIONS (12)
  - Pharyngitis [Recovered/Resolved]
  - Pulmonary valve stenosis [Not Recovered/Not Resolved]
  - Haemoglobin increased [Recovered/Resolved]
  - Vomiting [Recovering/Resolving]
  - Blood urine present [Recovered/Resolved]
  - Hypoinsulinaemia [Recovered/Resolved]
  - Dermatitis contact [Recovering/Resolving]
  - Alanine aminotransferase increased [Recovered/Resolved]
  - Vesicoureteric reflux [Not Recovered/Not Resolved]
  - Iron deficiency anaemia [Recovering/Resolving]
  - Urinary tract infection [Recovering/Resolving]
  - Glycosylated haemoglobin decreased [Recovered/Resolved]

NARRATIVE: CASE EVENT DATE: 2013
